FAERS Safety Report 6148952-6 (Version None)
Quarter: 2009Q2

REPORT INFORMATION
  Report Type: 
  Country: None (occurrence: None)
  Receive Date: 20090406
  Receipt Date: 20090320
  Transmission Date: 20091009
  Serious: Yes (Other)
  Sender: FDA-Public Use
  Company Number: 220001M09CAN

PATIENT
  Age: 18 Year
  Sex: Female

DRUGS (1)
  1. SAIZEN [Suspect]
     Indication: TURNER'S SYNDROME
     Dosage: 6 IN 1 WEEKS, SUBCUTANEOUS
     Route: 058
     Dates: start: 20070813

REACTIONS (1)
  - TYPE 2 DIABETES MELLITUS [None]
